FAERS Safety Report 12278891 (Version 2)
Quarter: 2016Q2

REPORT INFORMATION
  Report Type: Spontaneous
  Country: FR (occurrence: FR)
  Receive Date: 20160418
  Receipt Date: 20160422
  Transmission Date: 20160815
  Serious: Yes (Hospitalization, Other)
  Sender: FDA-Public Use
  Company Number: FR-009507513-1604FRA007624

PATIENT
  Age: 66 Year
  Sex: Male

DRUGS (15)
  1. LOXAPAC (LOXAPINE SUCCINATE) [Concomitant]
     Active Substance: LOXAPINE SUCCINATE
     Dosage: ON DEMAND
     Route: 048
  2. THERALENE [Concomitant]
     Active Substance: TRIMEPRAZINE
     Dosage: 10 MG, (10 MG, 1 IN 1 DAY)
     Route: 048
  3. KAYEXALATE [Concomitant]
     Active Substance: SODIUM POLYSTYRENE SULFONATE
     Dosage: POWDER FOR ORAL AND RECTAL SUSPENSION (FREQUENCY: DAYS OF DIALYSIS)
     Route: 048
  4. LASILIX [Concomitant]
     Active Substance: FUROSEMIDE
     Dosage: 250 MG (250 MG, 1 IN 1 DAY)
     Route: 048
  5. RISPERDAL [Concomitant]
     Active Substance: RISPERIDONE
     Dosage: 3 MG, (3 MG, 1 IN 1 DAY SCORED TABLET)
     Route: 048
  6. PLAVIX [Concomitant]
     Active Substance: CLOPIDOGREL BISULFATE
     Dosage: 75 MG, (75 MG, 1 IN 1 DAY)
     Route: 048
  7. EUPANTOL [Concomitant]
     Active Substance: PANTOPRAZOLE SODIUM
     Dosage: 40 MG (40 MG 1 IN 1 DAY) (GASTRO RESISTANT TABLET)
     Route: 048
  8. LYRICA [Concomitant]
     Active Substance: PREGABALIN
     Dosage: 25 MG (25 MG, 1 IN 1 DAY)
     Route: 048
  9. INVANZ [Suspect]
     Active Substance: ERTAPENEM SODIUM
     Indication: POSTOPERATIVE WOUND INFECTION
     Dosage: 1 G, (1 G, 1 IN 1 DAY)
     Route: 058
     Dates: start: 20160304, end: 20160322
  10. STILNOX [Concomitant]
     Active Substance: ZOLPIDEM TARTRATE
     Dosage: 10 MG, (10 MG, 1 IN 1 DAY)
     Route: 048
  11. PHOSPHOSORB [Concomitant]
     Dosage: 3960 MG (1320 MG, 3 IN 1 DAY)
     Route: 048
  12. CONTRAMAL [Concomitant]
     Active Substance: TRAMADOL HYDROCHLORIDE
     Dosage: ON DEMAND FREQUENCY
     Route: 048
  13. DAFALGAN [Concomitant]
     Active Substance: ACETAMINOPHEN
     Dosage: ON DEMAND FREQUENCY
     Route: 048
  14. NOVO-NORM [Concomitant]
     Active Substance: REPAGLINIDE
     Dosage: 0.5 MG, BID
     Route: 048
  15. SPECIAFOLDINE [Concomitant]
     Active Substance: FOLIC ACID
     Dosage: 5 MG (5 MG, 1 IN 1 DAY)
     Route: 048

REACTIONS (5)
  - Coma [Recovered/Resolved]
  - Bundle branch block right [Recovered/Resolved]
  - Overdose [Recovered/Resolved]
  - Miosis [Recovered/Resolved]
  - Seizure [Recovered/Resolved]

NARRATIVE: CASE EVENT DATE: 20160304
